FAERS Safety Report 8020006-3 (Version None)
Quarter: 2012Q1

REPORT INFORMATION
  Report Type: 
  Country: None (occurrence: None)
  Receive Date: 20120103
  Receipt Date: 20111229
  Transmission Date: 20120608
  Serious: Yes (Disabling)
  Sender: FDA-Public Use
  Company Number: PHHY2011GB113283

PATIENT
  Age: 35 Year
  Sex: Female
  Weight: 53 kg

DRUGS (2)
  1. TRAMADOL HCL [Suspect]
     Indication: ABDOMINAL PAIN
     Dosage: 50 MG, QD
     Route: 048
     Dates: start: 20110101, end: 20111101
  2. TRAMADOL HCL [Suspect]
     Indication: PROCEDURAL PAIN

REACTIONS (2)
  - WITHDRAWAL SYNDROME [None]
  - LETHARGY [None]
